FAERS Safety Report 16388412 (Version 1)
Quarter: 2019Q2

REPORT INFORMATION
  Report Type: Spontaneous
  Country: US (occurrence: US)
  Receive Date: 20190427
  Receipt Date: 20190427
  Transmission Date: 20190711
  Serious: Yes (Hospitalization)
  Sender: FDA-Public Use
  Company Number: None

PATIENT
  Age: 6 Year
  Sex: Male
  Weight: 22.3 kg

DRUGS (3)
  1. ZINECARD [Suspect]
     Active Substance: DEXRAZOXANE HYDROCHLORIDE
     Dates: end: 20190302
  2. DOXORUBICIN HYDROCHLORIDE. [Suspect]
     Active Substance: DOXORUBICIN HYDROCHLORIDE
     Dates: end: 20190328
  3. CISPLATIN. [Suspect]
     Active Substance: CISPLATIN
     Dates: end: 20190403

REACTIONS (4)
  - Febrile neutropenia [None]
  - Packed red blood cell transfusion [None]
  - Blood albumin decreased [None]
  - Blood magnesium decreased [None]

NARRATIVE: CASE EVENT DATE: 20190413
